FAERS Safety Report 9263333 (Version 1)
Quarter: 2013Q2

REPORT INFORMATION
  Report Type: Spontaneous
  Country: US (occurrence: US)
  Receive Date: 20130430
  Receipt Date: 20130430
  Transmission Date: 20140414
  Serious: No
  Sender: FDA-Public Use
  Company Number: US-ABBOTT-12P-163-0996640-00

PATIENT
  Age: 80 Year
  Sex: Female
  Weight: 90.8 kg

DRUGS (13)
  1. CREON [Suspect]
     Indication: PANCREATIC INSUFFICIENCY
     Dosage: TWO CAPS WITH MEALS AND ONE WITH SNACK
     Dates: start: 201206
  2. COUMADIN [Concomitant]
     Indication: HEART VALVE REPLACEMENT
  3. CRESTOR [Concomitant]
     Indication: BLOOD CHOLESTEROL INCREASED
  4. DIOVAN [Concomitant]
     Indication: HYPERTENSION
  5. HYDROCHLOROTHIAZIDE [Concomitant]
     Indication: HYPERTENSION
  6. FIORCET [Concomitant]
     Indication: MIGRAINE
  7. LIDO [Concomitant]
     Indication: MUSCULOSKELETAL PAIN
  8. NEURONTIN [Concomitant]
     Indication: NEURALGIA
  9. NITROFURODANTIN [Concomitant]
     Indication: PROPHYLAXIS URINARY TRACT INFECTION
  10. OCTREOTIDIE INJECTION [Concomitant]
     Indication: PANCREATIC CARCINOMA
  11. SOTALOL [Concomitant]
     Indication: HEART RATE IRREGULAR
  12. VITAMIN D [Concomitant]
     Indication: OSTEOPOROSIS
  13. ZETIA [Concomitant]
     Indication: BLOOD CHOLESTEROL INCREASED

REACTIONS (1)
  - Constipation [Not Recovered/Not Resolved]
